FAERS Safety Report 16928374 (Version 1)
Quarter: 2019Q4

REPORT INFORMATION
  Report Type: Report from Study
  Country: CA (occurrence: CA)
  Receive Date: 20191017
  Receipt Date: 20191017
  Transmission Date: 20200122
  Serious: Yes (Hospitalization)
  Sender: FDA-Public Use
  Company Number: CA-ORION CORPORATION ORION PHARMA-TREX2019-4348

PATIENT
  Age: 70 Year
  Sex: Female

DRUGS (7)
  1. COSENTYX [Suspect]
     Active Substance: SECUKINUMAB
     Route: 058
  2. STELARA [Concomitant]
     Active Substance: USTEKINUMAB
     Route: 065
  3. COSENTYX [Suspect]
     Active Substance: SECUKINUMAB
     Indication: PSORIASIS
     Route: 058
  4. COSENTYX [Suspect]
     Active Substance: SECUKINUMAB
     Route: 058
  5. ENBREL [Concomitant]
     Active Substance: ETANERCEPT
     Route: 065
  6. METHOTREXATE (TRADE NAME UNKNOWN) [Suspect]
     Active Substance: METHOTREXATE
     Indication: PRODUCT USED FOR UNKNOWN INDICATION
     Route: 065
  7. REMICADE [Concomitant]
     Active Substance: INFLIXIMAB
     Route: 065

REACTIONS (13)
  - Fatigue [Unknown]
  - Respiratory arrest [Unknown]
  - Asthenia [Unknown]
  - Oxygen saturation decreased [Unknown]
  - Urinary tract infection [Unknown]
  - Hypotension [Unknown]
  - Nasal congestion [Unknown]
  - Chronic obstructive pulmonary disease [Unknown]
  - Dyspnoea [Unknown]
  - Psoriasis [Unknown]
  - Movement disorder [Unknown]
  - Pneumonia [Unknown]
  - Hypersomnia [Unknown]
